FAERS Safety Report 12651909 (Version 2)
Quarter: 2016Q3

REPORT INFORMATION
  Report Type: Report from Study
  Country: US (occurrence: US)
  Receive Date: 20160815
  Receipt Date: 20160822
  Transmission Date: 20161109
  Serious: Yes (Other)
  Sender: FDA-Public Use
  Company Number: US-GILEAD-2016-0228033

PATIENT
  Age: 67 Year
  Sex: Female

DRUGS (1)
  1. AMBRISENTAN [Suspect]
     Active Substance: AMBRISENTAN
     Indication: PRODUCT USED FOR UNKNOWN INDICATION
     Dosage: 10 MG, QD
     Route: 065

REACTIONS (11)
  - Chest discomfort [Unknown]
  - Fatigue [Unknown]
  - Renal disorder [Unknown]
  - Palpitations [Unknown]
  - Condition aggravated [Unknown]
  - Presyncope [Not Recovered/Not Resolved]
  - Asthenia [Unknown]
  - Nausea [Unknown]
  - Face oedema [Unknown]
  - Fluid retention [Not Recovered/Not Resolved]
  - Oedema peripheral [Unknown]
